FAERS Safety Report 20251937 (Version 1)
Quarter: 2021Q4

REPORT INFORMATION
  Report Type: Spontaneous
  Country: US (occurrence: US)
  Receive Date: 20211229
  Receipt Date: 20211229
  Transmission Date: 20220304
  Serious: No
  Sender: FDA-Public Use
  Company Number: US-CELLTRION INC.-2021US011923

PATIENT

DRUGS (3)
  1. TRUXIMA [Suspect]
     Active Substance: RITUXIMAB-ABBS
     Indication: Product used for unknown indication
     Dosage: (500 MG VIAL) 600 MG FOR 1 DAY EVERY 2 MONTHS
     Route: 042
     Dates: start: 20210827
  2. TRUXIMA [Suspect]
     Active Substance: RITUXIMAB-ABBS
     Dosage: (100 MG VIAL) 600 MG FOR 1 DAY EVERY 2 MONTHS
     Route: 042
     Dates: start: 20210827
  3. TRUXIMA [Suspect]
     Active Substance: RITUXIMAB-ABBS
     Dosage: INCREASED TO 700 MG

REACTIONS (1)
  - Weight increased [Unknown]
